FAERS Safety Report 17276595 (Version 1)
Quarter: 2020Q1

REPORT INFORMATION
  Report Type: Spontaneous
  Country: CY (occurrence: CY)
  Receive Date: 20200116
  Receipt Date: 20200116
  Transmission Date: 20200409
  Serious: Yes (Other)
  Sender: FDA-Public Use
  Company Number: NVSC2020CY008769

PATIENT
  Age: 36 Year
  Sex: Female
  Weight: 63 kg

DRUGS (8)
  1. DEFEROXAMINE [Suspect]
     Active Substance: DEFEROXAMINE MESYLATE
     Dosage: 50 MG/KG (1 D ? 24 H-I (6) USING AN ELASTOMERIC PUMP
     Route: 065
  2. DEFEROXAMINE [Suspect]
     Active Substance: DEFEROXAMINE MESYLATE
     Dosage: 40 MG/KG (2 D ? 48 H-I (3), USING AN ELASTOMERIC PUMP
     Route: 065
  3. DEFERIPRONE [Suspect]
     Active Substance: DEFERIPRONE
     Dosage: 85 MG/KG, QD (7 MONTHS)
     Route: 065
  4. DEFERIPRONE [Suspect]
     Active Substance: DEFERIPRONE
     Dosage: 85 MG/KG, QD (9 MONTHS)
     Route: 065
  5. DEFERIPRONE [Suspect]
     Active Substance: DEFERIPRONE
     Dosage: 80 MG/KG, QD (7 MONTHS)
     Route: 065
  6. DEFEROXAMINE [Suspect]
     Active Substance: DEFEROXAMINE MESYLATE
     Indication: CHELATION THERAPY
     Dosage: 40 MG/KG (6 D ? 48 H-I (12), USING AN ELASTOMERIC PUMP
     Route: 065
  7. DEFERIPRONE [Suspect]
     Active Substance: DEFERIPRONE
     Dosage: 90 MG/KG, QD (2 MONTHS)
     Route: 065
  8. DEFERIPRONE [Suspect]
     Active Substance: DEFERIPRONE
     Indication: CHELATION THERAPY
     Dosage: 75 MG/KG, QD (3 MONTHS)
     Route: 065

REACTIONS (2)
  - Arrhythmia [Unknown]
  - Cardiomyopathy [Unknown]
